FAERS Safety Report 22522184 (Version 3)
Quarter: 2023Q4

REPORT INFORMATION
  Report Type: Report from Study
  Country: CN (occurrence: CN)
  Receive Date: 20230605
  Receipt Date: 20231102
  Transmission Date: 20240110
  Serious: Yes (Other)
  Sender: FDA-Public Use
  Company Number: CN-002147023-NVSC2023CN125629

PATIENT
  Age: 52 Year
  Sex: Male
  Weight: 85 kg

DRUGS (2)
  1. COSENTYX [Suspect]
     Active Substance: SECUKINUMAB
     Indication: Psoriasis
     Dosage: 150 MG, QMO (UNDER THE SKIN, USUALLY ADMINISTERED BY INJECTION)
     Route: 058
     Dates: start: 202302
  2. COSENTYX [Suspect]
     Active Substance: SECUKINUMAB
     Dosage: 2 DOSAGE FORM (2 INJECTIONS EACH TIME)
     Route: 065

REACTIONS (5)
  - Rheumatoid arthritis [Unknown]
  - Peripheral swelling [Unknown]
  - Drug ineffective [Unknown]
  - Pain in extremity [Unknown]
  - Grip strength decreased [Unknown]
